FAERS Safety Report 21835003 (Version 1)
Quarter: 2023Q1

REPORT INFORMATION
  Report Type: Other
  Country: IT (occurrence: None)
  Receive Date: 20230109
  Receipt Date: 20230109
  Transmission Date: 20230418
  Serious: Yes (Hospitalization)
  Sender: FDA-Public Use
  Company Number: IT-ROCHE-3257226

PATIENT
  Age: 73 Year
  Sex: Male

DRUGS (2)
  1. VISMODEGIB [Suspect]
     Active Substance: VISMODEGIB
     Indication: Basal cell carcinoma metastatic
     Dosage: DOSES
     Route: 048
  2. DENOSUMAB [Concomitant]
     Active Substance: DENOSUMAB

REACTIONS (3)
  - Disease progression [Unknown]
  - Drug ineffective [Unknown]
  - Drug resistance [Unknown]
